FAERS Safety Report 22539190 (Version 1)
Quarter: 2023Q2

REPORT INFORMATION
  Report Type: Spontaneous
  Country: IT (occurrence: IT)
  Receive Date: 20230609
  Receipt Date: 20230609
  Transmission Date: 20230722
  Serious: Yes (Hospitalization)
  Sender: FDA-Public Use
  Company Number: None

PATIENT
  Age: 56 Year
  Sex: Male

DRUGS (4)
  1. FLUOROURACIL [Suspect]
     Active Substance: FLUOROURACIL
     Indication: Colorectal cancer metastatic
     Dosage: CONCENTRATE AND SOLVENT FOR SOLUTION FOR INJECTION / INFUSION
     Dates: start: 20230426, end: 20230426
  2. OXALIPLATIN [Suspect]
     Active Substance: OXALIPLATIN
     Indication: Colorectal cancer metastatic
     Dosage: CONCENTRATE AND SOLVENT FOR SOLUTION FOR INJECTION / INFUSION
     Dates: start: 20230426, end: 20230426
  3. LEVOLEUCOVORIN [Concomitant]
     Active Substance: LEVOLEUCOVORIN
  4. FLUOROURACIL [Suspect]
     Active Substance: FLUOROURACIL
     Indication: Colorectal cancer metastatic
     Dosage: CONCENTRATE AND SOLVENT FOR SOLUTION FOR INJECTION / INFUSION
     Dates: start: 20230426, end: 20230426

REACTIONS (2)
  - Urinary retention [Recovering/Resolving]
  - Blood creatinine increased [Recovering/Resolving]

NARRATIVE: CASE EVENT DATE: 20230503
